FAERS Safety Report 4894698-1 (Version None)
Quarter: 2006Q1

REPORT INFORMATION
  Report Type: 
  Country: None (occurrence: None)
  Receive Date: 20060130
  Receipt Date: 20060119
  Transmission Date: 20060701
  Serious: Yes (Death)
  Sender: FDA-Public Use
  Company Number: US-JNJFOC-20040400763

PATIENT
  Sex: Female

DRUGS (3)
  1. INFLIXIMAB [Suspect]
     Indication: RHEUMATOID ARTHRITIS
     Route: 042
     Dates: start: 20010711, end: 20010801
  2. VOLTAREN [Concomitant]
  3. CUPRIMINE [Concomitant]

REACTIONS (5)
  - ARTERIOSCLEROSIS CORONARY ARTERY [None]
  - BLADDER CANCER [None]
  - COLITIS [None]
  - GASTROINTESTINAL INFLAMMATION [None]
  - URINARY TRACT INFECTION [None]
